FAERS Safety Report 23227311 (Version 3)
Quarter: 2025Q4

REPORT INFORMATION
  Report Type: Spontaneous
  Country: US (occurrence: US)
  Receive Date: 20231124
  Receipt Date: 20251021
  Transmission Date: 20260117
  Serious: Yes (Other)
  Sender: PFIZER
  Company Number: US-PFIZER INC-202300381449

PATIENT
  Age: 80 Year
  Sex: Male
  Weight: 65.76 kg

DRUGS (3)
  1. VYNDAMAX [Suspect]
     Active Substance: TAFAMIDIS
     Indication: Amyloidosis
     Dosage: 61MG ONCE A DAY IN THE MORNING
     Route: 048
  2. VYNDAMAX [Suspect]
     Active Substance: TAFAMIDIS
     Indication: Acquired ATTR amyloidosis
  3. ELIQUIS [Concomitant]
     Active Substance: APIXABAN
     Dosage: 5 MG

REACTIONS (3)
  - Cardiac failure congestive [Recovered/Resolved]
  - Cerebrovascular accident [Recovering/Resolving]
  - Myocardial infarction [Recovered/Resolved]

NARRATIVE: CASE EVENT DATE: 20221112
